FAERS Safety Report 20370267 (Version 5)
Quarter: 2022Q2

REPORT INFORMATION
  Report Type: Spontaneous
  Country: JP (occurrence: JP)
  Receive Date: 20220124
  Receipt Date: 20220512
  Transmission Date: 20220721
  Serious: Yes (Life-Threatening, Hospitalization, Other)
  Sender: FDA-Public Use
  Company Number: JP-MSD-M2022-01133

PATIENT
  Age: 85 Year
  Sex: Female
  Weight: 53 kg

DRUGS (11)
  1. MOLNUPIRAVIR [Suspect]
     Active Substance: MOLNUPIRAVIR
     Indication: COVID-19 treatment
     Dosage: 800 MILLIGRAM, BID
     Route: 048
     Dates: start: 20220117, end: 20220117
  2. BELSOMRA [Suspect]
     Active Substance: SUVOREXANT
     Indication: Insomnia
     Dosage: 15 MILLIGRAM, QD,BEFORE SLEEP
     Route: 048
     Dates: start: 20220116
  3. ROZEREM [Suspect]
     Active Substance: RAMELTEON
     Indication: Insomnia
     Dosage: 8 MILLIGRAM, QD,BEFORE SLEEP
     Route: 048
     Dates: start: 20220116
  4. SOTROVIMAB [Suspect]
     Active Substance: SOTROVIMAB
     Dosage: 500 MILLIGRAM, QD
     Route: 041
     Dates: start: 20220116, end: 20220116
  5. AZILSARTAN KAMEDOXOMIL [Concomitant]
     Active Substance: AZILSARTAN KAMEDOXOMIL
     Indication: Disease complication
     Dosage: 20 MILLIGRAM, QD,MORNING
     Route: 048
  6. HERBESSER [Concomitant]
     Active Substance: DILTIAZEM HYDROCHLORIDE
     Indication: Disease complication
     Dosage: 100 MILLIGRAM, QD,MORNING
     Route: 048
  7. AMLODIPINE BESYLATE [Concomitant]
     Active Substance: AMLODIPINE BESYLATE
     Indication: Disease complication
     Dosage: 2.5 MILLIGRAM, QD,MORNING
     Route: 048
  8. CILOSTAZOL [Concomitant]
     Active Substance: CILOSTAZOL
     Indication: Disease complication
     Dosage: 100 MILLIGRAM, BID,MORNING AND EVENING
     Route: 048
  9. ROSUVASTATIN CALCIUM [Concomitant]
     Active Substance: ROSUVASTATIN CALCIUM
     Indication: Disease complication
     Dosage: 5 MILLIGRAM, QD,EVENING ONLY
     Route: 048
  10. SPIRIVA [Concomitant]
     Active Substance: TIOTROPIUM BROMIDE MONOHYDRATE
     Indication: Disease complication
     Dosage: 5 MICROGRAM, QD,MORNING
  11. AMITIZA [Concomitant]
     Active Substance: LUBIPROSTONE
     Indication: Disease complication
     Dosage: 24 MICROGRAM, QD,MORNING
     Route: 048

REACTIONS (2)
  - Anaphylactic reaction [Recovered/Resolved]
  - Subileus [Recovered/Resolved]

NARRATIVE: CASE EVENT DATE: 20220117
